FAERS Safety Report 13022384 (Version 1)
Quarter: 2016Q4

REPORT INFORMATION
  Report Type: Report from Study
  Country: CO (occurrence: CO)
  Receive Date: 20161213
  Receipt Date: 20161213
  Transmission Date: 20170207
  Serious: Yes (Hospitalization)
  Sender: FDA-Public Use
  Company Number: PHHY2016CO168694

PATIENT
  Sex: Male
  Weight: 62 kg

DRUGS (1)
  1. VOTRIENT [Suspect]
     Active Substance: PAZOPANIB HYDROCHLORIDE
     Indication: RENAL CELL CARCINOMA
     Dosage: 400 MG, BID
     Route: 048
     Dates: start: 20160915, end: 20161123

REACTIONS (8)
  - Dizziness [Unknown]
  - Diarrhoea [Unknown]
  - Liver disorder [Unknown]
  - Skin fissures [Unknown]
  - Dehydration [Unknown]
  - Abdominal pain upper [Unknown]
  - Somnolence [Unknown]
  - Asthenia [Unknown]
